FAERS Safety Report 8210390-X (Version None)
Quarter: 2012Q1

REPORT INFORMATION
  Report Type: 
  Country: None (occurrence: None)
  Receive Date: 20120314
  Receipt Date: 20110928
  Transmission Date: 20120608
  Serious: No
  Sender: FDA-Public Use
  Company Number: US-ASTRAZENECA-2011SE58737

PATIENT
  Age: 59 Year
  Sex: Female

DRUGS (4)
  1. PREDNISONE TAB [Concomitant]
  2. TOPROL-XL [Suspect]
     Route: 048
  3. ATACAND HCT [Concomitant]
  4. CYCLOBENZAPRINE HCL [Concomitant]

REACTIONS (4)
  - ABASIA [None]
  - BLOOD PRESSURE INCREASED [None]
  - SCIATICA [None]
  - DRUG DOSE OMISSION [None]
